FAERS Safety Report 4559591-2 (Version None)
Quarter: 2005Q1

REPORT INFORMATION
  Report Type: 
  Country: None (occurrence: None)
  Receive Date: 20050113
  Receipt Date: 20040916
  Transmission Date: 20050727
  Serious: Yes (Other)
  Sender: FDA-Public Use
  Company Number: 345721

PATIENT
  Age: 43 Year
  Sex: Male

DRUGS (7)
  1. FUZEON [Suspect]
     Indication: HIV INFECTION
     Dosage: 90 MG 2 PER DAY SUBCUTANEOUS
     Route: 058
     Dates: start: 20030601
  2. FUZEON [Suspect]
  3. ZERIT [Concomitant]
  4. AZT [Concomitant]
  5. REYATAZ [Concomitant]
  6. KALETRA [Concomitant]
  7. HYDROXICINA (HYDROXYZINE HYDROCHLORIDE) [Concomitant]

REACTIONS (8)
  - ADVERSE EVENT [None]
  - DISEASE RECURRENCE [None]
  - INJECTION SITE ERYTHEMA [None]
  - INJECTION SITE NODULE [None]
  - INJECTION SITE PRURITUS [None]
  - INJECTION SITE REACTION [None]
  - MEDICATION ERROR [None]
  - SKIN LESION [None]
